FAERS Safety Report 9520309 (Version 4)
Quarter: 2014Q1

REPORT INFORMATION
  Report Type: Report from Study
  Country: JP (occurrence: JP)
  Receive Date: 20130912
  Receipt Date: 20140320
  Transmission Date: 20141002
  Serious: Yes (Hospitalization, Other)
  Sender: FDA-Public Use
  Company Number: JP-AMGEN-JPNCT2013064187

PATIENT
  Age: 65 Year
  Sex: Male
  Weight: 52 kg

DRUGS (16)
  1. DENOSUMAB [Suspect]
     Indication: METASTASES TO BONE
     Dosage: 120 MG/2012/12/19, 2013/01/16
     Route: 058
     Dates: start: 20121219, end: 20130116
  2. DOCETAXEL [Concomitant]
     Indication: PRODUCT USED FOR UNKNOWN INDICATION
     Dosage: UNKNOWN
     Route: 065
     Dates: start: 20130206, end: 20130701
  3. CALCI CHEW [Concomitant]
     Indication: HYPOCALCAEMIA
     Dosage: UNK
     Route: 048
     Dates: start: 20121219
  4. HERCEPTIN [Concomitant]
     Dosage: UNK
     Route: 065
     Dates: start: 20110704, end: 20130206
  5. ABRAXANE [Concomitant]
     Dosage: UNK
     Route: 065
     Dates: start: 20110704
  6. GEMCITABINE [Concomitant]
     Dosage: UNKNOWN     EVERY
     Route: 065
     Dates: start: 20120229, end: 20120620
  7. DOXORUBICIN HYDROCHLORIDE [Concomitant]
     Dosage: UNKNOWN     EVERY
     Route: 065
     Dates: start: 20120718, end: 20121031
  8. CYCLOPHOSPHAMIDE [Concomitant]
     Dosage: UNKNOWN     EVERY
     Route: 065
     Dates: start: 20120718, end: 20121031
  9. MAGNESIUM OXIDE [Concomitant]
     Dosage: UNK
     Route: 048
  10. PURSENNID                          /00142207/ [Concomitant]
     Dosage: EVERY
     Route: 048
  11. BENZALIN [Concomitant]
     Dosage: UNK
     Route: 048
     Dates: end: 20130206
  12. LYRICA [Concomitant]
     Dosage: UNK
     Route: 048
     Dates: start: 20111130
  13. PYDOXAL [Concomitant]
     Dosage: UNK
     Route: 048
     Dates: start: 20110727, end: 20130206
  14. CELECOX [Concomitant]
     Dosage: UNK
     Route: 048
     Dates: end: 20130206
  15. MUCOSTA [Concomitant]
     Dosage: UNK
     Route: 048
     Dates: end: 20130206
  16. SEROQUEL [Concomitant]
     Dosage: EVERY
     Route: 048

REACTIONS (5)
  - Osteonecrosis of jaw [Recovering/Resolving]
  - Febrile neutropenia [Recovered/Resolved]
  - Hypocalcaemia [Not Recovered/Not Resolved]
  - Anaemia [Recovering/Resolving]
  - Platelet count decreased [Recovering/Resolving]
